FAERS Safety Report 7570928-2 (Version None)
Quarter: 2011Q2

REPORT INFORMATION
  Report Type: 
  Country: None (occurrence: None)
  Receive Date: 20110622
  Receipt Date: 20110622
  Transmission Date: 20111010
  Serious: Yes (Other)
  Sender: FDA-Public Use
  Company Number: None

PATIENT
  Age: 46 Year
  Sex: Female
  Weight: 54.4316 kg

DRUGS (1)
  1. CYMBALTA [Suspect]
     Dosage: 1 DOSE (PILL) ONCE
     Dates: start: 20090101

REACTIONS (9)
  - HEADACHE [None]
  - DRUG HYPERSENSITIVITY [None]
  - VOMITING [None]
  - DYSPNOEA [None]
  - DIZZINESS [None]
  - HEART RATE INCREASED [None]
  - NAUSEA [None]
  - SENSATION OF FOREIGN BODY [None]
  - CHOKING SENSATION [None]
